FAERS Safety Report 14689630 (Version 1)
Quarter: 2018Q1

REPORT INFORMATION
  Report Type: Spontaneous
  Country: SE (occurrence: SE)
  Receive Date: 20180328
  Receipt Date: 20180328
  Transmission Date: 20180509
  Serious: Yes (Other)
  Sender: FDA-Public Use
  Company Number: SE-TEVA-2018-SE-872297

PATIENT
  Age: 65 Year
  Sex: Female

DRUGS (4)
  1. CIPROFLOXACIN ACCORD [Suspect]
     Active Substance: CIPROFLOXACIN
     Indication: ABDOMINAL INFECTION
     Route: 065
     Dates: start: 20171122, end: 20180307
  2. CIPROFLOXACIN ACCORD [Suspect]
     Active Substance: CIPROFLOXACIN
     Indication: INTESTINAL PERFORATION
  3. METRONIDAZOL ACTAVIS [Suspect]
     Active Substance: METRONIDAZOLE
     Indication: INTESTINAL PERFORATION
  4. METRONIDAZOL ACTAVIS [Suspect]
     Active Substance: METRONIDAZOLE
     Indication: ABDOMINAL INFECTION
     Dosage: 1500 MILLIGRAM DAILY;
     Route: 065
     Dates: start: 20171122, end: 20180307

REACTIONS (5)
  - Hand deformity [Unknown]
  - Burning sensation [Unknown]
  - Sensory loss [Unknown]
  - Polyneuropathy [Unknown]
  - Arthralgia [Unknown]

NARRATIVE: CASE EVENT DATE: 20180227
